FAERS Safety Report 8807133 (Version 1)
Quarter: 2012Q4

REPORT INFORMATION
  Report Type: 
  Country: NP (occurrence: NP)
  Receive Date: 20120925
  Receipt Date: 20120925
  Transmission Date: 20130627
  Serious: Yes (Death)
  Sender: FDA-Public Use
  Company Number: PHHY2006NP009917

PATIENT
  Sex: Male

DRUGS (1)
  1. GLIVEC [Suspect]
     Indication: CHRONIC MYELOID LEUKAEMIA
     Dates: start: 20060616

REACTIONS (4)
  - Sepsis [Fatal]
  - Neutropenia [Fatal]
  - Blast crisis in myelogenous leukaemia [Fatal]
  - Thrombocytopenia [Recovering/Resolving]
